FAERS Safety Report 23738225 (Version 1)
Quarter: 2024Q2

REPORT INFORMATION
  Report Type: Spontaneous
  Country: US (occurrence: US)
  Receive Date: 20240412
  Receipt Date: 20240412
  Transmission Date: 20240716
  Serious: Yes (Hospitalization, Other)
  Sender: FDA-Public Use
  Company Number: US-ANIPHARMA-2024-US-021682

PATIENT
  Age: 29 Year
  Sex: Male

DRUGS (3)
  1. ANASTROZOLE [Suspect]
     Active Substance: ANASTROZOLE
     Indication: Product use in unapproved indication
  2. TESTOSTERONE [Suspect]
     Active Substance: TESTOSTERONE
     Indication: Product use in unapproved indication
     Route: 051
  3. CLOMIPHENE [Suspect]
     Active Substance: CLOMIPHENE
     Indication: Product use in unapproved indication

REACTIONS (3)
  - Left ventricular hypertrophy [Unknown]
  - Secondary hypogonadism [Unknown]
  - Drug abuse [Unknown]
